FAERS Safety Report 24218481 (Version 1)
Quarter: 2024Q3

REPORT INFORMATION
  Report Type: Report from Study
  Country: JP (occurrence: JP)
  Receive Date: 20240816
  Receipt Date: 20240816
  Transmission Date: 20241017
  Serious: Yes (Death)
  Sender: AKEBIA THERAPEUTICS
  Company Number: JP-MTPC-MTPC2022-0015051

PATIENT

DRUGS (12)
  1. VADADUSTAT [Suspect]
     Active Substance: VADADUSTAT
     Indication: Nephrogenic anaemia
     Dosage: 300 MILLIGRAM, QD
     Route: 048
     Dates: start: 20220606, end: 20220606
  2. VADADUSTAT [Suspect]
     Active Substance: VADADUSTAT
     Dosage: 150 MILLIGRAM, QD
     Route: 048
     Dates: start: 20220607, end: 20220715
  3. VADADUSTAT [Suspect]
     Active Substance: VADADUSTAT
     Dosage: 300 MILLIGRAM, QD
     Route: 048
     Dates: start: 20220716, end: 20230222
  4. LANTHANUM CARBONATE [Suspect]
     Active Substance: LANTHANUM CARBONATE
     Indication: Product used for unknown indication
     Dosage: 2250 MILLIGRAM, QD
     Route: 048
     Dates: start: 20220604, end: 20220617
  5. AMLODIPINE BESYLATE [Concomitant]
     Active Substance: AMLODIPINE BESYLATE
     Indication: Product used for unknown indication
     Dosage: 10 MILLIGRAM, QD
     Route: 048
     Dates: start: 20220604
  6. CALCIUM CARBONATE [Concomitant]
     Active Substance: CALCIUM CARBONATE
     Indication: Product used for unknown indication
     Dosage: 1000 MILLIGRAM, QD
     Route: 048
     Dates: start: 20220618
  7. DARBEPOETIN ALFA [Concomitant]
     Active Substance: DARBEPOETIN ALFA
     Indication: Nephrogenic anaemia
     Dosage: 30 MICROGRAM, 1/WEEK
     Route: 042
     Dates: start: 20230227, end: 20230419
  8. DARBEPOETIN ALFA [Concomitant]
     Active Substance: DARBEPOETIN ALFA
     Dosage: 45 MICROGRAM, 1/WEEK
     Route: 042
     Dates: start: 20230426
  9. DARBEPOETIN ALFA [Concomitant]
     Active Substance: DARBEPOETIN ALFA
     Dosage: UNK
     Route: 042
     Dates: start: 20231002, end: 20231108
  10. FERRIC CITRATE ANHYDROUS [Concomitant]
     Active Substance: FERRIC CITRATE ANHYDROUS
     Indication: Product used for unknown indication
     Dosage: 3500 MILLIGRAM, QD
     Route: 048
     Dates: end: 20220715
  11. AZILSARTAN KAMEDOXOMIL [Concomitant]
     Active Substance: AZILSARTAN KAMEDOXOMIL
     Indication: Product used for unknown indication
     Dosage: 40 MILLIGRAM, QD
     Route: 048
  12. CARVEDILOL [Concomitant]
     Active Substance: CARVEDILOL
     Indication: Product used for unknown indication
     Dosage: 10 MILLIGRAM, QD
     Route: 048

REACTIONS (4)
  - Death [Fatal]
  - Nausea [Recovered/Resolved]
  - Diarrhoea [Recovered/Resolved]
  - Pain in extremity [Not Recovered/Not Resolved]

NARRATIVE: CASE EVENT DATE: 20220606
